FAERS Safety Report 11496375 (Version 2)
Quarter: 2015Q3

REPORT INFORMATION
  Report Type: Report from Study
  Country: US (occurrence: US)
  Receive Date: 20150911
  Receipt Date: 20150916
  Transmission Date: 20151125
  Serious: Yes (Disabling)
  Sender: FDA-Public Use
  Company Number: US-SA-2015SA136974

PATIENT
  Age: 61 Year
  Sex: Male

DRUGS (2)
  1. LANTUS SOLOSTAR [Suspect]
     Active Substance: INSULIN GLARGINE
     Indication: TYPE 2 DIABETES MELLITUS
     Dosage: DOSE:20 UNIT(S)
     Route: 058
     Dates: start: 20150829
  2. SOLOSTAR [Concomitant]
     Active Substance: DEVICE
     Dates: start: 20150829

REACTIONS (4)
  - Renal disorder [Not Recovered/Not Resolved]
  - Visual acuity reduced [Unknown]
  - Disability [Unknown]
  - Unevaluable event [Unknown]

NARRATIVE: CASE EVENT DATE: 2015
